FAERS Safety Report 4273656-4 (Version None)
Quarter: 2004Q1

REPORT INFORMATION
  Report Type: 
  Country: None (occurrence: None)
  Receive Date: 20040116
  Receipt Date: 20040116
  Transmission Date: 20041129
  Serious: No
  Sender: FDA-Public Use
  Company Number: None

PATIENT
  Age: 44 Year
  Sex: Male
  Weight: 105.2345 kg

DRUGS (7)
  1. LITHIUM CARBONATE [Suspect]
     Indication: AFFECTIVE DISORDER
     Dosage: 1000MG QAM ORAL, 500 MG QHS ORAL
     Route: 048
     Dates: start: 19980606, end: 20030601
  2. LITHIUM CARBONATE [Suspect]
     Indication: SCHIZOPHRENIA
     Dosage: 1000MG QAM ORAL, 500 MG QHS ORAL
     Route: 048
     Dates: start: 19980606, end: 20030601
  3. LITHIUM CARBONATE [Suspect]
     Indication: AFFECTIVE DISORDER
     Dosage: 1000MG QAM ORAL, 500 MG QHS ORAL
     Route: 048
     Dates: start: 19980606, end: 20030601
  4. LITHIUM CARBONATE [Suspect]
     Indication: SCHIZOPHRENIA
     Dosage: 1000MG QAM ORAL, 500 MG QHS ORAL
     Route: 048
     Dates: start: 19980606, end: 20030601
  5. ZYPREXA [Concomitant]
  6. CLONAZEPAM [Concomitant]
  7. SONATA [Concomitant]

REACTIONS (10)
  - ACUTE PRERENAL FAILURE [None]
  - FATIGUE [None]
  - OEDEMA PERIPHERAL [None]
  - PAIN IN EXTREMITY [None]
  - PITTING OEDEMA [None]
  - POLYURIA [None]
  - PROTEINURIA [None]
  - RENAL HYPERTROPHY [None]
  - URINE OUTPUT INCREASED [None]
  - WEIGHT INCREASED [None]
